FAERS Safety Report 17466471 (Version 2)
Quarter: 2020Q1

REPORT INFORMATION
  Report Type: Spontaneous
  Country: US (occurrence: US)
  Receive Date: 20200227
  Receipt Date: 20200327
  Transmission Date: 20200409
  Serious: Yes (Other)
  Sender: FDA-Public Use
  Company Number: US-SA-2020SA047119

PATIENT
  Age: 53 Year
  Sex: Female

DRUGS (5)
  1. OXALIPLATIN. [Suspect]
     Active Substance: OXALIPLATIN
     Dosage: DOSE REDUCTION OF OXALIPLATIN BY 50%
  2. FLUOROURACIL 5 FU [Concomitant]
     Active Substance: FLUOROURACIL
     Dosage: 400 MG/M2
     Route: 040
     Dates: start: 20110907, end: 20120118
  3. LEUCOVORINE [Concomitant]
     Active Substance: LEUCOVORIN
     Dosage: 200 MG/M2
     Dates: start: 20110907, end: 20120118
  4. OXALIPLATIN. [Suspect]
     Active Substance: OXALIPLATIN
     Indication: METASTASIS
     Dosage: 85 MG/M2, QOW
     Dates: start: 20110907, end: 20120118
  5. FLUOROURACIL 5 FU [Concomitant]
     Active Substance: FLUOROURACIL
     Dosage: 2400 UNK
     Route: 042

REACTIONS (2)
  - Bone marrow failure [Unknown]
  - Neuropathy peripheral [Unknown]
